FAERS Safety Report 11767892 (Version 1)
Quarter: 2015Q4

REPORT INFORMATION
  Report Type: Spontaneous
  Country: US (occurrence: US)
  Receive Date: 20151123
  Receipt Date: 20151123
  Transmission Date: 20160304
  Serious: Yes (Death, Hospitalization)
  Sender: FDA-Public Use
  Company Number: US-TARO PHARMACEUTICALS USA.,INC-2015SUN02243

PATIENT
  Age: 64 Year
  Sex: Female

DRUGS (1)
  1. WARFARIN [Suspect]
     Active Substance: WARFARIN
     Indication: ATRIAL FIBRILLATION
     Dosage: UNK
     Route: 065

REACTIONS (8)
  - Toxicity to various agents [Unknown]
  - Haematochezia [Unknown]
  - Blood urine present [Unknown]
  - Haematocrit decreased [Unknown]
  - Cardiac arrest [Fatal]
  - International normalised ratio increased [Unknown]
  - Drug-disease interaction [Unknown]
  - Coagulopathy [Unknown]
